FAERS Safety Report 22793501 (Version 5)
Quarter: 2023Q4

REPORT INFORMATION
  Report Type: Spontaneous
  Country: US (occurrence: US)
  Receive Date: 20230807
  Receipt Date: 20231020
  Transmission Date: 20240110
  Serious: No
  Sender: FDA-Public Use
  Company Number: US-Calliditas-2023CAL00931

PATIENT
  Age: 67 Year
  Sex: Female
  Weight: 48.08 kg

DRUGS (1)
  1. TARPEYO [Suspect]
     Active Substance: BUDESONIDE
     Indication: IgA nephropathy
     Dosage: 16 MG (4 MG CAPSULES) ONCE DAILY
     Route: 048
     Dates: start: 20230418

REACTIONS (9)
  - Cushingoid [Not Recovered/Not Resolved]
  - Euphoric mood [Not Recovered/Not Resolved]
  - Protein total decreased [Not Recovered/Not Resolved]
  - Muscle spasms [Not Recovered/Not Resolved]
  - Irritability [Not Recovered/Not Resolved]
  - Contusion [Recovering/Resolving]
  - Oedema peripheral [Unknown]
  - Petechiae [Unknown]
  - Alopecia [Unknown]

NARRATIVE: CASE EVENT DATE: 20230420
